FAERS Safety Report 8434016 (Version 2)
Quarter: 2013Q2

REPORT INFORMATION
  Report Type: Spontaneous
  Country: US (occurrence: US)
  Receive Date: 20120229
  Receipt Date: 20130401
  Transmission Date: 20140414
  Serious: Yes (Hospitalization, Other)
  Sender: FDA-Public Use
  Company Number: US-ASTRAZENECA-2010SE16052

PATIENT
  Age: 64 Year
  Sex: Male

DRUGS (2)
  1. SYMBICORT PMDI [Suspect]
     Indication: CHRONIC OBSTRUCTIVE PULMONARY DISEASE
     Dosage: 160/4.5 MCG, DAILY
     Route: 055
  2. SYMBICORT PMDI [Suspect]
     Indication: CHRONIC OBSTRUCTIVE PULMONARY DISEASE
     Dosage: TWO PUFFS, EVERY 12 HOURS
     Route: 055

REACTIONS (5)
  - Spondylolisthesis [Unknown]
  - Vertebral foraminal stenosis [Unknown]
  - Hernia [Unknown]
  - Dyspnoea [Unknown]
  - Drug dose omission [Unknown]
